FAERS Safety Report 7370022-X (Version None)
Quarter: 2011Q1

REPORT INFORMATION
  Report Type: 
  Country: None (occurrence: None)
  Receive Date: 20110323
  Receipt Date: 20110309
  Transmission Date: 20110831
  Serious: Yes (Other)
  Sender: FDA-Public Use
  Company Number: PHHY2011FR19761

PATIENT
  Sex: Female

DRUGS (4)
  1. REVLIMID [Suspect]
     Indication: MULTIPLE MYELOMA
     Dosage: 25 MG, DAILY
     Route: 048
     Dates: start: 20101008, end: 20110118
  2. ASPIRIN [Suspect]
     Indication: MULTIPLE MYELOMA
     Dosage: 100 MG, DAILY
     Route: 048
     Dates: start: 20101008
  3. NEODEXON [Suspect]
     Indication: MULTIPLE MYELOMA
     Dosage: 10 MG, PER WEEK
     Route: 048
     Dates: start: 20101008
  4. ZOMETA [Suspect]
     Indication: MULTIPLE MYELOMA
     Dosage: 4MG/5ML PER MONTH
     Dates: start: 20101008

REACTIONS (1)
  - TOXIC SKIN ERUPTION [None]
